FAERS Safety Report 12843348 (Version 1)
Quarter: 2016Q4

REPORT INFORMATION
  Report Type: Spontaneous
  Country: US (occurrence: US)
  Receive Date: 20161013
  Receipt Date: 20161013
  Transmission Date: 20170207
  Serious: Yes (Hospitalization)
  Sender: FDA-Public Use
  Company Number: None

PATIENT
  Age: 55 Year
  Sex: Male
  Weight: 59 kg

DRUGS (12)
  1. LOPRESSOR [Concomitant]
     Active Substance: METOPROLOL TARTRATE
  2. TACROLIMUS (PROGRAF) [Concomitant]
  3. PROTONIX [Concomitant]
     Active Substance: PANTOPRAZOLE SODIUM
  4. COPEGUS [Suspect]
     Active Substance: RIBAVIRIN
     Indication: HEPATITIS C
     Route: 048
  5. SOFOSBUVIR 400 MG [Suspect]
     Active Substance: SOFOSBUVIR
     Dates: start: 20160301
  6. INEINSULIN GLARGINE [Concomitant]
  7. DACLATASVIR 60 MG [Suspect]
     Active Substance: DACLATASVIR
     Indication: HEPATITIS C
     Route: 048
     Dates: start: 20160301
  8. INSULIN ASPART (NOVOLOG) [Concomitant]
  9. REMERON [Concomitant]
     Active Substance: MIRTAZAPINE
  10. DELTASONE [Concomitant]
     Active Substance: PREDNISONE
  11. SILDENAFIL (VIAGRA) [Concomitant]
  12. NEURONTIN [Concomitant]
     Active Substance: GABAPENTIN

REACTIONS (3)
  - Acute kidney injury [None]
  - Depression [None]
  - Glycosylated haemoglobin increased [None]

NARRATIVE: CASE EVENT DATE: 20160729
